FAERS Safety Report 21967813 (Version 1)
Quarter: 2023Q1

REPORT INFORMATION
  Report Type: Spontaneous
  Country: US (occurrence: None)
  Receive Date: 20230207
  Receipt Date: 20230207
  Transmission Date: 20230417
  Serious: Yes (Hospitalization, Other)
  Sender: FDA-Public Use
  Company Number: None

PATIENT
  Age: 67 Year
  Sex: Female
  Weight: 83.91 kg

DRUGS (1)
  1. BACLOFEN [Suspect]
     Active Substance: BACLOFEN

REACTIONS (7)
  - Constipation [None]
  - Faecaloma [None]
  - Dizziness [None]
  - Device delivery system issue [None]
  - Meningitis staphylococcal [None]
  - Enterococcal infection [None]
  - Withdrawal syndrome [None]

NARRATIVE: CASE EVENT DATE: 20230115
